FAERS Safety Report 16184017 (Version 16)
Quarter: 2021Q4

REPORT INFORMATION
  Report Type: Report from Study
  Country: US (occurrence: US)
  Receive Date: 20190411
  Receipt Date: 20211116
  Transmission Date: 20220303
  Serious: Yes (Life-Threatening, Hospitalization, Disabling)
  Sender: FDA-Public Use
  Company Number: US-TESAROUBC-2019-TSO01131-US

PATIENT
  Age: 56 Year
  Sex: Female

DRUGS (45)
  1. NIRAPARIB [Suspect]
     Active Substance: NIRAPARIB
     Indication: Ovarian cancer
     Dosage: MOST RECENT DOSE OF NIRAPARIB PRIOR TO THE ONSET OF CHOLELITHIAIS 200 MG
     Route: 048
     Dates: start: 20190205, end: 20190220
  2. NIRAPARIB [Suspect]
     Active Substance: NIRAPARIB
     Dosage: MOST RECENT DOSE OF NIRAPARIB PRIOR TO THE SMALL BOWEL OBSTRUCTION 200 MG
     Route: 048
     Dates: start: 20190305
  3. NIRAPARIB [Suspect]
     Active Substance: NIRAPARIB
     Dosage: MOST RECENT DOSE OF NIRAPARIB 200 MG PRIOR TO ONSET OF ISCHEMIC STROKE AND GI BLEED
     Route: 048
     Dates: start: 20190415
  4. NIRAPARIB [Suspect]
     Active Substance: NIRAPARIB
     Dosage: MOST RECENT DOSE OF NIRAPARIB 200 MG PRIOR TO
     Route: 048
     Dates: start: 20190416
  5. NIRAPARIB [Suspect]
     Active Substance: NIRAPARIB
     Dosage: MOST RECENT DOSE PRIOR TO WORSENING OF DIARRHEA ONSET
     Route: 048
     Dates: start: 20190218
  6. COBIMETINIB [Suspect]
     Active Substance: COBIMETINIB
     Indication: Ovarian cancer
     Dosage: 60 MG
     Route: 048
     Dates: start: 20190205, end: 20190220
  7. COBIMETINIB [Suspect]
     Active Substance: COBIMETINIB
     Dosage: 60 MG
     Route: 048
     Dates: start: 20190305
  8. COBIMETINIB [Suspect]
     Active Substance: COBIMETINIB
     Dosage: 40 MG, QD
     Route: 048
     Dates: start: 20190415
  9. COBIMETINIB [Suspect]
     Active Substance: COBIMETINIB
     Dosage: 40 MG
     Route: 048
     Dates: start: 20190416
  10. COBIMETINIB [Suspect]
     Active Substance: COBIMETINIB
     Dosage: 60 MG
     Route: 048
     Dates: start: 20190218
  11. ONDANSETRON [Concomitant]
     Active Substance: ONDANSETRON
     Indication: Nausea
     Dosage: 8 MG, PRN (1 IN 1 AS REQUIRED)
     Route: 048
     Dates: start: 20180221, end: 20190614
  12. METOPROLOL [Concomitant]
     Active Substance: METOPROLOL
     Indication: Hypertension
     Dosage: 100 MG, 1 IN 1 D
     Route: 048
     Dates: start: 20181226, end: 20190614
  13. LOSARTAN [Concomitant]
     Active Substance: LOSARTAN
     Indication: Hypertension
     Dosage: 25 MG, 1 IN 1 D
     Route: 048
     Dates: start: 20181212, end: 20190614
  14. PREGABALIN [Concomitant]
     Active Substance: PREGABALIN
     Indication: Peripheral sensory neuropathy
     Dosage: 150 MG, 1 IN 1 D
     Route: 048
     Dates: start: 20181022, end: 20190614
  15. OXYCODONE/PARACETAMOL TABLET [Concomitant]
     Indication: Pain
     Dosage: 330 MG, 1 IN 1 D
     Route: 048
     Dates: start: 20171101, end: 20190614
  16. DIPHENHYDRAMINE [Concomitant]
     Active Substance: DIPHENHYDRAMINE
     Indication: Sleep disorder
     Dosage: 25 MG, 1 IN 1 D
     Route: 048
     Dates: start: 20180221, end: 20190614
  17. DOCUSATE SODIUM [Concomitant]
     Active Substance: DOCUSATE SODIUM
     Indication: Constipation
     Dosage: 100 MG, 1 IN 1 AS REQUIRED
     Route: 048
     Dates: start: 20180221, end: 20190614
  18. PROCHLORPERAZINE [Concomitant]
     Active Substance: PROCHLORPERAZINE
     Indication: Nausea
     Dosage: 10 MG, 1 IN 1 AS REQUIRED
     Route: 048
     Dates: start: 20190205, end: 20190614
  19. LORAZEPAM [Concomitant]
     Active Substance: LORAZEPAM
     Indication: Nausea
     Dosage: 0.5 MG, 1 IN 1 AS REQUIRED
     Route: 048
     Dates: start: 20190205, end: 20190614
  20. LOPERAMIDE [Concomitant]
     Active Substance: LOPERAMIDE
     Indication: Diarrhoea
     Dosage: 2 MG, 1 IN 1 AS REQUIRED
     Route: 048
     Dates: start: 20190205, end: 20190614
  21. TRAZODONE [Concomitant]
     Active Substance: TRAZODONE HYDROCHLORIDE
     Indication: Product used for unknown indication
     Dosage: 50 MG, 1 IN 1 D
     Route: 048
     Dates: start: 20190205, end: 20190614
  22. ACETAMINOPHEN [Concomitant]
     Active Substance: ACETAMINOPHEN
     Indication: Pyrexia
     Dosage: 650 MG,1 IN 1 QD
     Route: 048
     Dates: start: 20190220, end: 20190220
  23. ACETAMINOPHEN [Concomitant]
     Active Substance: ACETAMINOPHEN
     Dosage: 650 MG, QD
     Route: 048
     Dates: start: 20190307, end: 20190310
  24. ALBUTEROL [Concomitant]
     Active Substance: ALBUTEROL
     Indication: Wheezing
     Dosage: 2.5 MG, PRN
     Route: 055
     Dates: start: 20190220, end: 20190614
  25. PEPCID [Concomitant]
     Active Substance: FAMOTIDINE
     Indication: Nausea
     Dosage: 20 MG, QD
     Route: 042
     Dates: start: 20190220, end: 20190614
  26. LIDEX [Concomitant]
     Active Substance: FLUOCINONIDE
     Indication: Rash
     Dosage: 0.5 %, QD
     Route: 061
     Dates: start: 20190219, end: 20190614
  27. ACLOVATE [Concomitant]
     Active Substance: ALCLOMETASONE DIPROPIONATE
     Indication: Rash
     Dosage: 0.05 %, BID
     Route: 061
     Dates: start: 20190219, end: 20190614
  28. DOXYCYCLINE [Concomitant]
     Active Substance: DOXYCYCLINE
     Indication: Rash
     Dosage: 100 MG, BID
     Route: 048
     Dates: start: 20190213, end: 20190614
  29. ENOXAPARIN [Concomitant]
     Active Substance: ENOXAPARIN
     Indication: Thrombosis prophylaxis
     Dosage: 40 MG, QD
     Route: 058
     Dates: start: 20190222, end: 20190614
  30. ENOXAPARIN [Concomitant]
     Active Substance: ENOXAPARIN
     Dosage: 40 MG, QD
     Route: 058
     Dates: start: 20190312, end: 20190313
  31. MORPHINE [Concomitant]
     Active Substance: MORPHINE
     Indication: Pain
     Dosage: 3 MG, PRN
     Route: 042
     Dates: start: 20190222, end: 20190222
  32. KINEVAC [Concomitant]
     Active Substance: SINCALIDE
     Indication: Cholelithiasis
     Dosage: 2.1 ?G, QD
     Route: 042
     Dates: start: 20190222, end: 20190222
  33. MAGNESIUM SULFATE [Concomitant]
     Active Substance: MAGNESIUM SULFATE
     Indication: Nutritional supplementation
     Dosage: 2 G, QD
     Route: 042
     Dates: start: 20190222, end: 20190222
  34. POTASSIUM CHLORIDE [Concomitant]
     Active Substance: POTASSIUM CHLORIDE
     Indication: Nutritional supplementation
     Dosage: 40 UNK, QD
     Route: 042
     Dates: start: 20190222, end: 20190222
  35. POTASSIUM CHLORIDE [Concomitant]
     Active Substance: POTASSIUM CHLORIDE
     Indication: Hypokalaemia
     Dosage: 40 OTHER QD
     Route: 042
     Dates: start: 20190308, end: 20190308
  36. IBUPROFEN [Concomitant]
     Active Substance: IBUPROFEN
     Indication: Pain
     Dosage: 600 MG, QID
     Route: 048
     Dates: start: 20190221, end: 20190614
  37. ERTAPENEM [Concomitant]
     Active Substance: ERTAPENEM
     Indication: Infection
     Dosage: 1000 ?G, QD
     Route: 042
     Dates: start: 20190221, end: 20190223
  38. SUMATRIPTAN [Concomitant]
     Active Substance: SUMATRIPTAN
     Indication: Headache
     Dosage: 25 MG, QD
     Route: 048
     Dates: start: 20190309, end: 20190309
  39. KETOROLAC [Concomitant]
     Active Substance: KETOROLAC TROMETHAMINE
     Indication: Abdominal pain
     Dosage: 30 MG, PRN
     Route: 042
     Dates: start: 20190309, end: 20190309
  40. HYDRALAZINE [Concomitant]
     Active Substance: HYDRALAZINE HYDROCHLORIDE
     Indication: Gastrointestinal tube insertion
     Dosage: 10 MG, PRN
     Route: 042
     Dates: start: 20190308, end: 20190309
  41. CHLORASEPTIC SORE THROAT [Concomitant]
     Active Substance: PHENOL
     Indication: Gastrointestinal tube insertion
     Dosage: 1.4 %, PRN
     Route: 042
     Dates: start: 20190308, end: 20190310
  42. MESALAMINE [Concomitant]
     Active Substance: MESALAMINE
     Indication: Cholecystitis
     Dosage: 1.2 G, BID
     Route: 048
     Dates: start: 20190312, end: 20190313
  43. PROTONIX [Concomitant]
     Active Substance: PANTOPRAZOLE SODIUM
     Dosage: UNK
     Dates: start: 20190603, end: 20190603
  44. ASPIRIN [Concomitant]
     Active Substance: ASPIRIN
     Indication: Ischaemic stroke
     Dosage: UNK, QD
     Route: 048
     Dates: start: 20190502, end: 20190504
  45. HUMAN RED BLOOD CELL [Concomitant]
     Active Substance: HUMAN RED BLOOD CELL
     Dosage: UNK

REACTIONS (6)
  - Gastrointestinal haemorrhage [Recovered/Resolved]
  - Cholelithiasis [Recovered/Resolved]
  - Condition aggravated [Recovered/Resolved]
  - Syncope [Recovering/Resolving]
  - Ischaemic stroke [Not Recovered/Not Resolved]
  - Diarrhoea [Not Recovered/Not Resolved]

NARRATIVE: CASE EVENT DATE: 20190219
